FAERS Safety Report 6584671-X (Version None)
Quarter: 2010Q1

REPORT INFORMATION
  Report Type: 
  Country: None (occurrence: None)
  Receive Date: 20100204
  Receipt Date: 20100120
  Transmission Date: 20100710
  Serious: Yes (Death)
  Sender: FDA-Public Use
  Company Number: 2010000274

PATIENT
  Age: 61 Year
  Sex: Male

DRUGS (10)
  1. ERLOTINIB (ERLOTINIB) (TABLET) (ERLOTINIB) [Suspect]
     Indication: NON-SMALL CELL LUNG CANCER METASTATIC
     Dosage: (MG, QD), ORAL
     Route: 048
     Dates: start: 20091202, end: 20100112
  2. FELODIPINE (FELOPINE (FELODIPINE) [Concomitant]
  3. ENALAPRIL MALEATE [Concomitant]
  4. BENDROFLUMETHIAZIDE (BENDROFLUMETHIAZIDE) [Concomitant]
  5. DEXAMETHASONE TAB [Concomitant]
  6. PHENYTOIN [Concomitant]
  7. RANITIDINE [Concomitant]
  8. ENOXAPARIN SODIUM [Concomitant]
  9. ASACOL [Concomitant]
  10. ORAMORPH SR [Concomitant]

REACTIONS (11)
  - AGITATION [None]
  - ATRIOVENTRICULAR BLOCK FIRST DEGREE [None]
  - DECREASED APPETITE [None]
  - GENERAL PHYSICAL HEALTH DETERIORATION [None]
  - HAEMATEMESIS [None]
  - LOWER RESPIRATORY TRACT INFECTION [None]
  - OXYGEN SATURATION DECREASED [None]
  - PNEUMONIA [None]
  - POLLAKIURIA [None]
  - SINUS TACHYCARDIA [None]
  - VOMITING [None]
